FAERS Safety Report 11966565 (Version 5)
Quarter: 2023Q2

REPORT INFORMATION
  Report Type: Report from Study
  Country: GB (occurrence: GB)
  Receive Date: 20160127
  Receipt Date: 20230519
  Transmission Date: 20230722
  Serious: No
  Sender: FDA-Public Use
  Company Number: GB-SHIRE-GB201600671

PATIENT
  Age: 6 Year
  Sex: Male

DRUGS (31)
  1. IDURSULFASE [Suspect]
     Active Substance: IDURSULFASE
     Indication: Mucopolysaccharidosis II
     Dosage: 0.5 MILLIGRAM/KILOGRAM, 1/WEEK
     Route: 042
     Dates: start: 20070604
  2. IDURSULFASE [Suspect]
     Active Substance: IDURSULFASE
     Dosage: 0.45 MILLIGRAM/KILOGRAM, 1/WEEK
     Route: 042
     Dates: start: 20070604
  3. IDURSULFASE [Suspect]
     Active Substance: IDURSULFASE
     Dosage: 0.44 MILLIGRAM/KILOGRAM, 1/WEEK
     Route: 042
     Dates: start: 20171204
  4. CETIRIZINE [Concomitant]
     Active Substance: CETIRIZINE HYDROCHLORIDE
     Indication: Seasonal allergy
     Dosage: UNK
     Route: 048
  5. RISPERIDONE [Concomitant]
     Active Substance: RISPERIDONE
     Indication: Product used for unknown indication
     Dosage: UNK
     Route: 048
     Dates: start: 2021
  6. ACETAMINOPHEN [Concomitant]
     Active Substance: ACETAMINOPHEN
     Indication: Premedication
     Dosage: UNK
     Route: 048
     Dates: start: 20070604, end: 20070604
  7. ACETAMINOPHEN [Concomitant]
     Active Substance: ACETAMINOPHEN
     Indication: Erythema
     Dosage: UNK
     Route: 048
     Dates: start: 20070611, end: 20070611
  8. ACETAMINOPHEN [Concomitant]
     Active Substance: ACETAMINOPHEN
     Indication: Body temperature increased
     Dosage: UNK
     Route: 048
     Dates: start: 20070618, end: 20070618
  9. ACETAMINOPHEN [Concomitant]
     Active Substance: ACETAMINOPHEN
     Indication: Preoperative care
     Dosage: UNK
     Route: 048
     Dates: start: 20070702, end: 20070702
  10. ACETAMINOPHEN [Concomitant]
     Active Substance: ACETAMINOPHEN
     Dosage: UNK
     Route: 048
     Dates: start: 20070709, end: 20070709
  11. ACETAMINOPHEN [Concomitant]
     Active Substance: ACETAMINOPHEN
     Dosage: UNK
     Route: 048
     Dates: start: 20070716, end: 20070716
  12. ACETAMINOPHEN [Concomitant]
     Active Substance: ACETAMINOPHEN
     Dosage: UNK
     Route: 048
     Dates: start: 20070723, end: 20080507
  13. ACETAMINOPHEN [Concomitant]
     Active Substance: ACETAMINOPHEN
     Dosage: UNK
     Route: 048
     Dates: start: 20081002, end: 20081009
  14. ACETAMINOPHEN [Concomitant]
     Active Substance: ACETAMINOPHEN
     Dosage: UNK
     Route: 048
     Dates: start: 20090225, end: 20090312
  15. ACETAMINOPHEN [Concomitant]
     Active Substance: ACETAMINOPHEN
     Dosage: UNK
     Route: 048
     Dates: start: 20130507, end: 20130520
  16. ACETAMINOPHEN [Concomitant]
     Active Substance: ACETAMINOPHEN
     Dosage: UNK
     Route: 048
     Dates: start: 20151001, end: 20151008
  17. CHLORPHENIRAMINE MALEATE [Concomitant]
     Active Substance: CHLORPHENIRAMINE MALEATE
     Indication: Premedication
     Dosage: UNK
     Route: 048
     Dates: start: 20070604, end: 20070604
  18. CHLORPHENIRAMINE MALEATE [Concomitant]
     Active Substance: CHLORPHENIRAMINE MALEATE
     Dosage: UNK
     Route: 048
     Dates: start: 20070611, end: 20070611
  19. CHLORPHENIRAMINE MALEATE [Concomitant]
     Active Substance: CHLORPHENIRAMINE MALEATE
     Dosage: UNK
     Route: 048
     Dates: start: 20070618, end: 20070618
  20. CHLORPHENIRAMINE MALEATE [Concomitant]
     Active Substance: CHLORPHENIRAMINE MALEATE
     Dosage: UNK
     Route: 048
     Dates: start: 20070702, end: 20070702
  21. CHLORPHENIRAMINE MALEATE [Concomitant]
     Active Substance: CHLORPHENIRAMINE MALEATE
     Dosage: UNK
     Route: 048
     Dates: start: 20070707, end: 20070707
  22. CHLORPHENIRAMINE MALEATE [Concomitant]
     Active Substance: CHLORPHENIRAMINE MALEATE
     Dosage: UNK
     Route: 048
     Dates: start: 20070716, end: 20080507
  23. Ametop [Concomitant]
     Indication: Premedication
     Dosage: UNK
     Route: 061
     Dates: start: 20070926
  24. AMOXICILLIN [Concomitant]
     Active Substance: AMOXICILLIN
     Indication: Cough
     Dosage: UNK
     Route: 048
     Dates: start: 20090325, end: 20090331
  25. AMOXICILLIN [Concomitant]
     Active Substance: AMOXICILLIN
     Indication: Pyrexia
  26. CHLORHEXIDINE HYDROCHLORIDE\NEOMYCIN SULFATE [Concomitant]
     Active Substance: CHLORHEXIDINE HYDROCHLORIDE\NEOMYCIN SULFATE
     Indication: Epistaxis
     Dosage: UNK
     Route: 045
     Dates: start: 20120124, end: 20130318
  27. DESMOPRESSIN [Concomitant]
     Active Substance: DESMOPRESSIN
     Indication: Enuresis
     Dosage: UNK
     Route: 065
     Dates: start: 20130604, end: 20130625
  28. ZERODOUBLE [Concomitant]
     Indication: Pruritus
     Dosage: UNK
     Route: 061
     Dates: start: 201701
  29. CEFTRIAXONE [Concomitant]
     Active Substance: CEFTRIAXONE
     Dosage: UNK
     Route: 065
     Dates: start: 202009
  30. CHOLECALCIFEROL [Concomitant]
     Active Substance: CHOLECALCIFEROL
     Indication: Vitamin supplementation
     Dosage: UNK
     Route: 048
     Dates: start: 20220106
  31. MELATONIN [Concomitant]
     Active Substance: MELATONIN
     Indication: Poor quality sleep
     Dosage: UNK
     Route: 048
     Dates: start: 20220106

REACTIONS (1)
  - Knee deformity [Unknown]

NARRATIVE: CASE EVENT DATE: 20120612
